FAERS Safety Report 24283969 (Version 1)
Quarter: 2024Q3

REPORT INFORMATION
  Report Type: Spontaneous
  Country: US (occurrence: US)
  Receive Date: 20240905
  Receipt Date: 20240905
  Transmission Date: 20241017
  Serious: No
  Sender: ABBVIE
  Company Number: US-ABBVIE-5898457

PATIENT
  Sex: Female
  Weight: 104 kg

DRUGS (2)
  1. HUMIRA [Suspect]
     Active Substance: ADALIMUMAB
     Indication: Rheumatoid arthritis
     Route: 058
  2. DUPIXENT [Suspect]
     Active Substance: DUPILUMAB
     Indication: Rheumatoid arthritis
     Dosage: STRENGTH:300MG/2ML
     Route: 058

REACTIONS (6)
  - Mobility decreased [Unknown]
  - Pain [Unknown]
  - Herpes zoster [Recovering/Resolving]
  - Injection site erythema [Recovering/Resolving]
  - Injection site vesicles [Recovering/Resolving]
  - Product use in unapproved indication [Unknown]

NARRATIVE: CASE EVENT DATE: 20240101
